FAERS Safety Report 18091844 (Version 1)
Quarter: 2020Q3

REPORT INFORMATION
  Report Type: Spontaneous
  Country: US (occurrence: US)
  Receive Date: 20200729
  Receipt Date: 20200729
  Transmission Date: 20201103
  Serious: Yes (Other)
  Sender: FDA-Public Use
  Company Number: None

PATIENT
  Age: 9 Year
  Sex: Male
  Weight: 57.78 kg

DRUGS (1)
  1. ARIPIPRAZOLE. [Suspect]
     Active Substance: ARIPIPRAZOLE
     Indication: BIPOLAR DISORDER
     Route: 048
     Dates: start: 20120710, end: 20200729

REACTIONS (2)
  - Product substitution issue [None]
  - Disease recurrence [None]

NARRATIVE: CASE EVENT DATE: 20150817
